FAERS Safety Report 23068197 (Version 1)
Quarter: 2023Q4

REPORT INFORMATION
  Report Type: Spontaneous
  Country: US (occurrence: US)
  Receive Date: 20231016
  Receipt Date: 20231016
  Transmission Date: 20240110
  Serious: Yes (Hospitalization)
  Sender: FDA-Public Use
  Company Number: US-BSC-2023000075

PATIENT
  Age: 69 Year
  Sex: Female

DRUGS (1)
  1. VARITHENA [Suspect]
     Active Substance: POLIDOCANOL
     Indication: Varicose vein

REACTIONS (4)
  - Calciphylaxis [Unknown]
  - Toxic shock syndrome [Unknown]
  - Disseminated intravascular coagulation [Unknown]
  - Beta haemolytic streptococcal infection [Unknown]
